FAERS Safety Report 4894389-7 (Version None)
Quarter: 2005Q4

REPORT INFORMATION
  Report Type: 
  Country: None (occurrence: None)
  Receive Date: 20051223
  Receipt Date: 20050831
  Transmission Date: 20060501
  Serious: No
  Sender: FDA-Public Use
  Company Number: 05P-163-0309991-00

PATIENT
  Age: 67 Year
  Sex: Female
  Weight: 68.9467 kg

DRUGS (7)
  1. HUMIRA [Suspect]
     Indication: RHEUMATOID ARTHRITIS
     Dosage: 40 MG, 1 IN 2 WK , SUBCUTANEOUS
     Route: 058
     Dates: start: 20050831
  2. AMLODIPINE BESYLATE [Concomitant]
  3. ATENOLOL [Concomitant]
  4. ESOMEPRAZOLE [Concomitant]
  5. VYTORIN [Concomitant]
  6. PARACETAMOL [Concomitant]
  7. ACETYLSALICYLIC ACID SRT [Concomitant]

REACTIONS (1)
  - INJECTION SITE IRRITATION [None]
